FAERS Safety Report 6421081-X (Version None)
Quarter: 2009Q4

REPORT INFORMATION
  Report Type: 
  Country: None (occurrence: None)
  Receive Date: 20091030
  Receipt Date: 20091020
  Transmission Date: 20100525
  Serious: Yes (Hospitalization)
  Sender: FDA-Public Use
  Company Number: US-JNJFOC-20091006934

PATIENT
  Sex: Male
  Weight: 72.58 kg

DRUGS (9)
  1. REMICADE [Suspect]
     Indication: CROHN'S DISEASE
     Dosage: INITIATED IN 2005-2006
     Route: 042
  2. PENTASA [Concomitant]
     Indication: CROHN'S DISEASE
     Dosage: DURATION 4 YEARS
  3. PREDNISONE [Concomitant]
     Indication: CROHN'S DISEASE
     Dosage: DURATION 3 YEARS
  4. CRESTOR [Concomitant]
     Indication: CROHN'S DISEASE
     Dosage: DURATION 3 YEARS
  5. METOPROLOL SUCCINATE [Concomitant]
     Indication: CARDIAC DISORDER
     Dosage: DURATION 3 YEARS
  6. COLESTIPOL HYDROCHLORIDE [Concomitant]
     Indication: CROHN'S DISEASE
     Dosage: DURATION 4-5 YEARS
  7. DIPHENOXYLATE HCL + ATROPINE SULFATE [Concomitant]
     Indication: CROHN'S DISEASE
     Dosage: DURATION 4 YEARS
  8. ISOSORBIDE [Concomitant]
     Indication: BLOOD CHOLESTEROL
     Dosage: DURATION 2 YEARS
  9. ASPIRIN [Concomitant]
     Indication: CARDIAC DISORDER
     Dosage: DURATION 2 YEARS

REACTIONS (8)
  - ABASIA [None]
  - APHASIA [None]
  - ASTHENIA [None]
  - DYSGRAPHIA [None]
  - HEADACHE [None]
  - HYPERSENSITIVITY [None]
  - INFUSION RELATED REACTION [None]
  - OEDEMA PERIPHERAL [None]
